FAERS Safety Report 8911212 (Version 1)
Quarter: 2012Q4

REPORT INFORMATION
  Report Type: 
  Country: US (occurrence: US)
  Receive Date: 20121116
  Receipt Date: 20121116
  Transmission Date: 20130627
  Serious: No
  Sender: FDA-Public Use
  Company Number: US-GLAXOSMITHKLINE-A0991664A

PATIENT
  Age: 48 Year
  Sex: Male
  Weight: 103.6 kg

DRUGS (10)
  1. VOTRIENT [Suspect]
     Indication: PRODUCT USED FOR UNKNOWN INDICATION
     Dosage: 200MG See dosage text
     Route: 048
  2. MORPHINE SULPHATE [Concomitant]
  3. METFORMIN [Concomitant]
  4. LISINOPRIL [Concomitant]
  5. ZOFRAN [Concomitant]
  6. DICLOFENAC [Concomitant]
  7. MULTIVITAMIN [Concomitant]
  8. CALCIUM + D [Concomitant]
  9. ASPIRIN [Concomitant]
  10. STOOL SOFTENER [Concomitant]

REACTIONS (5)
  - Fatigue [Unknown]
  - Dizziness [Unknown]
  - Nausea [Unknown]
  - Constipation [Unknown]
  - Decreased appetite [Unknown]
